FAERS Safety Report 23775322 (Version 1)
Quarter: 2024Q2

REPORT INFORMATION
  Report Type: Spontaneous
  Country: CA (occurrence: CA)
  Receive Date: 20240423
  Receipt Date: 20240423
  Transmission Date: 20240716
  Serious: Yes (Other)
  Sender: FDA-Public Use
  Company Number: CA-TEVA-VS-3187654

PATIENT
  Age: 4 Decade
  Sex: Female

DRUGS (2)
  1. METHOTREXATE [Suspect]
     Active Substance: METHOTREXATE
     Indication: Corneal epithelial downgrowth
     Route: 065
  2. FLUOROURACIL [Concomitant]
     Active Substance: FLUOROURACIL
     Indication: Corneal epithelial downgrowth
     Route: 065

REACTIONS (5)
  - Retinal detachment [Unknown]
  - Hypotony of eye [Unknown]
  - Keratopathy [Unknown]
  - Off label use [Unknown]
  - Glaucoma [Unknown]
